FAERS Safety Report 11311155 (Version 1)
Quarter: 2015Q3

REPORT INFORMATION
  Report Type: Spontaneous
  Country: US (occurrence: None)
  Receive Date: 20150724
  Receipt Date: 20150724
  Transmission Date: 20151125
  Serious: Yes (Death)
  Sender: FDA-Public Use
  Company Number: None

PATIENT
  Age: 59 Year
  Sex: Female
  Weight: 56.7 kg

DRUGS (6)
  1. CRIZOTINIB (200 MG); MFR: PFIZER [Suspect]
     Active Substance: CRIZOTINIB
     Indication: BREAST CANCER METASTATIC
     Route: 048
     Dates: start: 20150115, end: 20150312
  2. SUNITINIB (25 MG); MFR: PFIZER [Suspect]
     Active Substance: SUNITINIB
     Indication: BREAST CANCER METASTATIC
     Route: 048
     Dates: start: 20150115, end: 20150312
  3. ALBUTEROL INHALER [Concomitant]
     Active Substance: ALBUTEROL
  4. ZOFRAN [Concomitant]
     Active Substance: ONDANSETRON HYDROCHLORIDE
  5. TRAMADOL. [Concomitant]
     Active Substance: TRAMADOL
  6. ATIVAN [Concomitant]
     Active Substance: LORAZEPAM

REACTIONS (1)
  - Death [None]

NARRATIVE: CASE EVENT DATE: 20150417
